FAERS Safety Report 17137629 (Version 1)
Quarter: 2019Q4

REPORT INFORMATION
  Report Type: Spontaneous
  Country: FI (occurrence: FI)
  Receive Date: 20191210
  Receipt Date: 20191210
  Transmission Date: 20200122
  Serious: Yes (Other)
  Sender: FDA-Public Use
  Company Number: FI-SA-2019SA335036

PATIENT
  Age: 72 Year
  Sex: Male

DRUGS (2)
  1. TOUJEO [Suspect]
     Active Substance: INSULIN GLARGINE
     Indication: TYPE 2 DIABETES MELLITUS
     Dosage: ABOUT 160 UNITS, BUT THIS WAS NOT CONSTANTLY
     Route: 065
  2. CORTISONE ACETATE. [Suspect]
     Active Substance: CORTISONE ACETATE
     Indication: PRODUCT USE IN UNAPPROVED INDICATION
     Route: 065

REACTIONS (2)
  - Blood glucose increased [Unknown]
  - Lymphoma [Unknown]

NARRATIVE: CASE EVENT DATE: 201909
